FAERS Safety Report 5004432-2 (Version None)
Quarter: 2006Q2

REPORT INFORMATION
  Report Type: 
  Country: None (occurrence: None)
  Receive Date: 20060511
  Receipt Date: 20060505
  Transmission Date: 20061013
  Serious: Yes (Death)
  Sender: FDA-Public Use
  Company Number: 163-21880-06040169

PATIENT
  Age: 81 Year
  Sex: Male

DRUGS (14)
  1. REVLIMID [Suspect]
     Indication: MYELODYSPLASTIC SYNDROME
     Dosage: 10 MG, QD, ORAL
     Route: 048
     Dates: start: 20060223, end: 20060316
  2. INSULIN [Concomitant]
  3. LIPITOR [Concomitant]
  4. HYZAAR [Concomitant]
  5. FLOMAX [Concomitant]
  6. RESTORIL [Concomitant]
  7. ASPIRIN [Concomitant]
  8. METOPROLOL SUCCINATE [Concomitant]
  9. SPIRONOLACTONE [Concomitant]
  10. AVANDIA [Concomitant]
  11. NITRO-PATCH (GLYCERYL TRINITRATE) [Concomitant]
  12. PLAVIX [Concomitant]
  13. FOLIC ACID [Concomitant]
  14. AMIODARONE HYDROCHLORIDE [Concomitant]

REACTIONS (2)
  - ACUTE RESPIRATORY DISTRESS SYNDROME [None]
  - PNEUMONIA [None]
